FAERS Safety Report 9036956 (Version 1)
Quarter: 2013Q1

REPORT INFORMATION
  Report Type: Spontaneous
  Country: DK (occurrence: None)
  Receive Date: 20130115
  Receipt Date: 20130115
  Transmission Date: 20140127
  Serious: Yes (Other)
  Sender: FDA-Public Use
  Company Number: 2013MA000329

PATIENT
  Age: 77 Year
  Sex: Female

DRUGS (3)
  1. BISOPROLOL FUMARTE AND HYDROCHOROTHIAZIDE TABLETS [Suspect]
     Indication: TACHYCARDIA
     Route: 048
     Dates: start: 20120201, end: 20120228
  2. ZOFENOPRIL [Suspect]
     Route: 048
     Dates: start: 20120201, end: 20120215
  3. CARDICOR [Concomitant]

REACTIONS (2)
  - Tachycardia [None]
  - Blood pressure increased [None]
